FAERS Safety Report 8300225-9 (Version None)
Quarter: 2012Q2

REPORT INFORMATION
  Report Type: 
  Country: None (occurrence: None)
  Receive Date: 20120420
  Receipt Date: 20120416
  Transmission Date: 20120825
  Serious: Yes (Other)
  Sender: FDA-Public Use
  Company Number: US-PFIZER INC-2012094257

PATIENT
  Sex: Male
  Weight: 81.633 kg

DRUGS (2)
  1. EFFEXOR [Suspect]
     Dosage: 37.5 MG, 2X/DAY
     Dates: end: 20120409
  2. EFFEXOR [Suspect]
     Indication: DEPRESSION
     Dosage: 150 MG, DAILY

REACTIONS (8)
  - WITHDRAWAL SYNDROME [None]
  - SUICIDAL IDEATION [None]
  - MYALGIA [None]
  - EAR DISORDER [None]
  - TINNITUS [None]
  - MALAISE [None]
  - DIZZINESS [None]
  - NAUSEA [None]
